FAERS Safety Report 5652487-4 (Version None)
Quarter: 2008Q1

REPORT INFORMATION
  Report Type: 
  Country: None (occurrence: None)
  Receive Date: 20080306
  Receipt Date: 20080226
  Transmission Date: 20080703
  Serious: Yes (Hospitalization)
  Sender: FDA-Public Use
  Company Number: FR-JNJFOC-20080206539

PATIENT
  Age: 8 Decade
  Sex: Female

DRUGS (14)
  1. CAELYX [Suspect]
     Route: 042
  2. CAELYX [Suspect]
     Route: 042
  3. CAELYX [Suspect]
     Route: 042
  4. CAELYX [Suspect]
     Route: 042
  5. CAELYX [Suspect]
     Route: 042
  6. CAELYX [Suspect]
     Indication: OVARIAN CANCER
     Route: 042
  7. DURAGESIC-100 [Concomitant]
     Route: 062
  8. ACTISKENAN [Concomitant]
     Route: 065
  9. MORPAL [Concomitant]
     Route: 065
  10. DIGOXIN [Concomitant]
     Route: 065
  11. CORDARONE [Concomitant]
     Route: 065
  12. LOXEN [Concomitant]
     Route: 065
  13. PRIMPERAN INJ [Concomitant]
     Indication: PREMEDICATION
     Route: 065
  14. ZOPHREN [Concomitant]
     Route: 065

REACTIONS (7)
  - CHILLS [None]
  - HYPERTENSION [None]
  - INFUSION RELATED REACTION [None]
  - PYREXIA [None]
  - TACHYCARDIA [None]
  - TACHYPNOEA [None]
  - TREMOR [None]
